FAERS Safety Report 7907551-3 (Version None)
Quarter: 2011Q4

REPORT INFORMATION
  Report Type: 
  Country: None (occurrence: None)
  Receive Date: 20111110
  Receipt Date: 20111031
  Transmission Date: 20120403
  Serious: Yes (Hospitalization, Other)
  Sender: FDA-Public Use
  Company Number: PHEH2007US05548

PATIENT
  Sex: Male
  Weight: 85.261 kg

DRUGS (79)
  1. LEVAQUIN [Concomitant]
     Dosage: 500 MG
  2. HYDROCODONE BITARTRATE AND ACETAMINOPHEN [Concomitant]
     Dosage: 7.5 MG/500 MG
  3. CIPRO [Concomitant]
     Dosage: 250 MG
  4. FAMVIR                                  /NET/ [Concomitant]
     Dosage: 500 MG
  5. OXYFAST [Concomitant]
  6. CALCIUM [Concomitant]
     Dosage: 600 MG, BID
  7. KEFLEX [Concomitant]
  8. REVLIMID [Concomitant]
  9. XANAX [Concomitant]
  10. NEXIUM [Concomitant]
     Dosage: 40 MG
  11. ALPRAZOLAM [Concomitant]
     Dosage: 0.25 MG
  12. ZITHROMAX [Concomitant]
  13. DURAGESIC-100 [Concomitant]
     Dosage: 25 MCG/HR
  14. SYNTHROID [Concomitant]
     Dosage: 25 MCG
  15. EFFEXOR XR [Concomitant]
     Dosage: 37.5 MG
  16. THALIDOMIDE [Concomitant]
  17. VELCADE [Concomitant]
  18. DECADRON [Concomitant]
  19. MYLANTA                                 /AUS/ [Concomitant]
  20. PRILOSEC [Concomitant]
     Dosage: 20 MG
  21. METOCLOPRAMIDE [Concomitant]
     Dosage: 10 MG
  22. PROFEN II DM [Concomitant]
  23. OXYCODONE HCL AND ACETAMINOPHEN [Concomitant]
     Dosage: 5/325 MG
  24. NYSTATIN [Concomitant]
     Dosage: 10,000 U
  25. OXYCODONE HCL [Concomitant]
     Dosage: 5 MG
  26. AMITRIPTYLINE HCL [Concomitant]
     Dosage: 25 MG
  27. PREDNISONE TAB [Concomitant]
     Dosage: 20 MG
  28. CHLORHEXIDINE GLUCONATE [Concomitant]
     Dosage: 0.12%
  29. CLONAZEPAM [Concomitant]
  30. PREVACID [Concomitant]
     Dosage: 30 MG
  31. NITROSTAT [Concomitant]
     Dosage: 0.4 MG
  32. GLYBURIDE [Concomitant]
     Dosage: 1.25 MG
  33. CLINDAMYCIN [Concomitant]
     Dosage: 300 MG, TID
  34. AUGMENTIN '125' [Concomitant]
  35. ALOXI [Concomitant]
  36. MAALOX                                  /NET/ [Concomitant]
  37. GLUCOVANCE [Concomitant]
  38. PAROXETINE HCL [Concomitant]
  39. CARISOPRODOL [Concomitant]
     Dosage: 350 MG
  40. CYMBALTA [Concomitant]
     Dosage: 60 MG
  41. PERCOCET [Concomitant]
  42. DIFLUCAN [Concomitant]
  43. ZOLOFT [Concomitant]
     Dosage: 50 MG, QD
     Route: 048
  44. OXYLR [Concomitant]
     Dosage: 20 MG 1-2 TIMES PER DAY
  45. MIRALAX [Concomitant]
  46. METOPROLOL [Concomitant]
     Dosage: 50 MG
  47. MORPHINE SULFATE [Concomitant]
     Dosage: 20 MG/ML
  48. BIAXIN [Concomitant]
     Dosage: 250 MG
  49. PENICILLIN VK [Concomitant]
     Dosage: 500 MG
  50. PAXIL [Concomitant]
     Dosage: 12.5 MG
  51. VALTREX [Concomitant]
     Dosage: 500 MG
  52. PROVIGIL [Concomitant]
     Dosage: 200 MG
  53. COMPRO [Concomitant]
     Dosage: 25 MG
  54. DEXAMETHASONE W/DOXORUBICIN/VINCRISTINE [Concomitant]
     Dosage: UNK
     Dates: start: 20021001
  55. VITAMIN D [Concomitant]
     Dosage: 1000 MG, QD
  56. CALCIUM [Concomitant]
  57. ATENOLOL [Concomitant]
     Dosage: 25 MG QD
  58. FLOVENT [Concomitant]
     Dosage: 44 MCG
  59. PROCHLORPERAZINE [Concomitant]
     Dosage: 10 MG
  60. VICODIN [Concomitant]
  61. PHENERGAN [Concomitant]
  62. NEURONTIN [Concomitant]
  63. PROCRIT                            /00909301/ [Concomitant]
     Dosage: UNK
     Dates: start: 20040101
  64. LEXAPRO [Concomitant]
  65. CYTOXAN [Concomitant]
  66. ACYCLOVIR [Concomitant]
  67. VIDAZA [Concomitant]
  68. METHADONE HCL [Concomitant]
     Dosage: 30 MG TID
  69. OMEPRAZOLE [Concomitant]
  70. CHLORHEXAMED [Concomitant]
  71. AREDIA [Suspect]
     Dosage: MONTHLY
  72. ZOMETA [Suspect]
     Dosage: MONTHLY
     Route: 042
     Dates: end: 20081008
  73. MINITRAN [Concomitant]
     Dosage: 0.2 MG/HR
  74. AMOXICILLIN [Concomitant]
     Dosage: 500 MG
  75. DEXAMETHASONE [Concomitant]
     Dosage: 4 MG
  76. LACTULOSE [Concomitant]
     Dosage: 10 GM/15 ML
  77. FLUCONAZOLE [Concomitant]
     Dosage: 100 MG
  78. AVELOX [Concomitant]
     Dosage: 300 MG
  79. SERTRALINE HYDROCHLORIDE [Concomitant]
     Dosage: 50 MG

REACTIONS (99)
  - PAIN [None]
  - BLINDNESS TRANSIENT [None]
  - EYE PAIN [None]
  - HYPOKALAEMIA [None]
  - NECK MASS [None]
  - LEUKOPENIA [None]
  - LIBIDO DECREASED [None]
  - DYSURIA [None]
  - RENAL PAIN [None]
  - NEOPLASM MALIGNANT [None]
  - TRICUSPID VALVE INCOMPETENCE [None]
  - ERYTHEMA [None]
  - ASTHENIA [None]
  - HYPERHIDROSIS [None]
  - COUGH [None]
  - FATIGUE [None]
  - NAUSEA [None]
  - DYSPHAGIA [None]
  - VITAMIN B12 DEFICIENCY [None]
  - ROTATOR CUFF SYNDROME [None]
  - CHILLS [None]
  - MYOCLONUS [None]
  - CARDIOMEGALY [None]
  - INJURY [None]
  - HERPES ZOSTER [None]
  - DRUG DEPENDENCE [None]
  - GYNAECOMASTIA [None]
  - DEHYDRATION [None]
  - DYSPNOEA EXERTIONAL [None]
  - BLOOD IMMUNOGLOBULIN A INCREASED [None]
  - LIP PAIN [None]
  - MUSCLE SPASMS [None]
  - VIRAL UPPER RESPIRATORY TRACT INFECTION [None]
  - BREAST PAIN [None]
  - GINGIVAL BLEEDING [None]
  - GENERALISED OEDEMA [None]
  - CATARACT [None]
  - HYPOAESTHESIA [None]
  - CHEST PAIN [None]
  - MALAISE [None]
  - PNEUMONIA [None]
  - GLAUCOMA [None]
  - PALPITATIONS [None]
  - PARAESTHESIA [None]
  - PAPILLOEDEMA [None]
  - MUSCLE TWITCHING [None]
  - SYNCOPE [None]
  - SWELLING [None]
  - INFECTION [None]
  - MULTIPLE MYELOMA [None]
  - PAIN IN JAW [None]
  - NECK PAIN [None]
  - BONE PAIN [None]
  - ROAD TRAFFIC ACCIDENT [None]
  - FLANK PAIN [None]
  - DEMYELINATING POLYNEUROPATHY [None]
  - BREAST SWELLING [None]
  - PTERYGIUM [None]
  - BIOPSY BONE MARROW [None]
  - OSTEONECROSIS OF JAW [None]
  - SPINAL DISORDER [None]
  - OEDEMA PERIPHERAL [None]
  - OSTEOARTHRITIS [None]
  - PANCYTOPENIA [None]
  - ASPIRATION PLEURAL CAVITY [None]
  - VOMITING [None]
  - AFFECTIVE DISORDER [None]
  - DIZZINESS [None]
  - APHASIA [None]
  - HAEMOPTYSIS [None]
  - CACHEXIA [None]
  - TYPE 2 DIABETES MELLITUS [None]
  - BACK PAIN [None]
  - HEADACHE [None]
  - LOSS OF CONSCIOUSNESS [None]
  - PYREXIA [None]
  - DECREASED APPETITE [None]
  - MUCOSAL INFLAMMATION [None]
  - ASBESTOSIS [None]
  - CONJUNCTIVITIS INFECTIVE [None]
  - ORAL PAIN [None]
  - VISION BLURRED [None]
  - GASTROOESOPHAGEAL REFLUX DISEASE [None]
  - WEIGHT DECREASED [None]
  - SPONDYLITIC MYELOPATHY [None]
  - AORTIC STENOSIS [None]
  - BONE FISTULA [None]
  - ANXIETY [None]
  - LUMBAR SPINAL STENOSIS [None]
  - ANAEMIA [None]
  - MOUTH ULCERATION [None]
  - HYPERGLYCAEMIA [None]
  - PLEURAL EFFUSION [None]
  - HYPOPHOSPHATAEMIA [None]
  - SINUSITIS [None]
  - SLEEP APNOEA SYNDROME [None]
  - BALANCE DISORDER [None]
  - MUSCULAR WEAKNESS [None]
  - FALL [None]
